FAERS Safety Report 4538339-1 (Version None)
Quarter: 2004Q4

REPORT INFORMATION
  Report Type: 
  Country: None (occurrence: None)
  Receive Date: 20041221
  Receipt Date: 20041213
  Transmission Date: 20050328
  Serious: No
  Sender: FDA-Public Use
  Company Number: 2004AC01020

PATIENT
  Weight: 4.7 kg

DRUGS (4)
  1. LIDOCAINE [Suspect]
     Indication: CONVULSION NEONATAL
     Dosage: 2 MG/KG ONCE IV
     Route: 042
  2. LIDOCAINE [Suspect]
     Indication: CONVULSION NEONATAL
     Dosage: 6 MG/KG/HR/IV
     Route: 042
  3. PHENOBARBITAL TAB [Concomitant]
  4. MIDAZOLAM HCL [Concomitant]

REACTIONS (3)
  - ARRHYTHMIA NEONATAL [None]
  - BRADYCARDIA NEONATAL [None]
  - ELECTROCARDIOGRAM QRS COMPLEX PROLONGED [None]
